FAERS Safety Report 4292232-0 (Version None)
Quarter: 2004Q1

REPORT INFORMATION
  Report Type: 
  Country: None (occurrence: None)
  Receive Date: 20040211
  Receipt Date: 20030509
  Transmission Date: 20041129
  Serious: Yes (Death)
  Sender: FDA-Public Use
  Company Number: US-GLAXOSMITHKLINE-A0407866A

PATIENT
  Age: 12 Year
  Sex: Female

DRUGS (3)
  1. PAXIL [Suspect]
     Dosage: 10MG PER DAY
     Route: 048
     Dates: start: 20001016, end: 20010606
  2. ZYPREXA [Concomitant]
     Dosage: 2.5MG AT NIGHT
     Route: 048
     Dates: start: 20001101, end: 20001201
  3. CONCERTA [Concomitant]
     Dosage: 18MG PER DAY
     Dates: start: 20010401

REACTIONS (7)
  - ABNORMAL BEHAVIOUR [None]
  - AGGRESSION [None]
  - COMPLETED SUICIDE [None]
  - DRUG INEFFECTIVE [None]
  - HALLUCINATIONS, MIXED [None]
  - INJURY ASPHYXIATION [None]
  - TREMOR [None]
